FAERS Safety Report 9815909 (Version 1)
Quarter: 2014Q1

REPORT INFORMATION
  Report Type: Spontaneous
  Country: US (occurrence: US)
  Receive Date: 20140114
  Receipt Date: 20140114
  Transmission Date: 20141002
  Serious: No
  Sender: FDA-Public Use
  Company Number: US-BAXTER-2014BAX000101

PATIENT
  Sex: Male

DRUGS (5)
  1. DIANEAL LOW CALCIUM (ULTRABAG) [Suspect]
     Indication: PERITONEAL DIALYSIS
     Route: 033
  2. DIANEAL LOW CALCIUM (ULTRABAG) [Suspect]
     Indication: PERITONEAL DIALYSIS
     Route: 033
     Dates: start: 201309
  3. DIANEAL LOW CALCIUM (ULTRABAG) [Suspect]
     Indication: RENAL FAILURE CHRONIC
  4. EXTRANEAL [Suspect]
     Indication: PERITONEAL DIALYSIS
     Route: 033
     Dates: start: 201309
  5. EXTRANEAL [Suspect]
     Indication: RENAL FAILURE CHRONIC

REACTIONS (4)
  - Nasopharyngitis [Recovered/Resolved]
  - Hypophagia [Recovered/Resolved]
  - Cough [Recovered/Resolved]
  - Dehydration [Recovered/Resolved]
